FAERS Safety Report 10882728 (Version 2)
Quarter: 2015Q2

REPORT INFORMATION
  Report Type: Spontaneous
  Country: US (occurrence: US)
  Receive Date: 20150303
  Receipt Date: 20150609
  Transmission Date: 20150821
  Serious: No
  Sender: FDA-Public Use
  Company Number: US-GLAXOSMITHKLINE-US2015015517

PATIENT
  Sex: Male

DRUGS (3)
  1. MUPIROCIN CREAM [Suspect]
     Active Substance: MUPIROCIN
     Indication: INFECTION
     Dosage: UNK
     Route: 061
     Dates: start: 201505
  2. MUPIROCIN CREAM [Suspect]
     Active Substance: MUPIROCIN
     Indication: INFECTION PROPHYLAXIS
  3. MUPIROCIN. [Suspect]
     Active Substance: MUPIROCIN
     Indication: CELLULITIS
     Dosage: UNK

REACTIONS (3)
  - Infection [Unknown]
  - Pain in extremity [Recovered/Resolved]
  - Drug ineffective [Unknown]
